FAERS Safety Report 10570513 (Version 1)
Quarter: 2014Q4

REPORT INFORMATION
  Report Type: Spontaneous
  Country: US (occurrence: None)
  Receive Date: 20141106
  Receipt Date: 20141106
  Transmission Date: 20150529
  Serious: No
  Sender: FDA-Public Use
  Company Number: None

PATIENT
  Age: 41 Year
  Sex: Female
  Weight: 102.06 kg

DRUGS (1)
  1. MIRVASO [Suspect]
     Active Substance: BRIMONIDINE TARTRATE
     Indication: ROSACEA
     Dosage: CREAM-PEA SIZE AMOUNT APPLIED TO A SURFACE, USUALLY THE SKIN
     Route: 061
     Dates: start: 20131113, end: 20131115

REACTIONS (6)
  - Burning sensation [None]
  - Application site paraesthesia [None]
  - Flushing [None]
  - Application site exfoliation [None]
  - Erythema [None]
  - Application site burn [None]

NARRATIVE: CASE EVENT DATE: 20131113
